FAERS Safety Report 20657135 (Version 1)
Quarter: 2022Q1

REPORT INFORMATION
  Report Type: Report from Study
  Country: HN (occurrence: HN)
  Receive Date: 20220331
  Receipt Date: 20220331
  Transmission Date: 20220424
  Serious: Yes (Disabling)
  Sender: FDA-Public Use
  Company Number: HN-NOVARTISPH-NVSC2022HN070645

PATIENT
  Age: 69 Year
  Sex: Female

DRUGS (1)
  1. DIOVAN [Suspect]
     Active Substance: VALSARTAN
     Indication: Product used for unknown indication
     Dosage: 160 MG
     Route: 065
     Dates: start: 202007

REACTIONS (3)
  - Blindness [Not Recovered/Not Resolved]
  - Optic neuropathy [Not Recovered/Not Resolved]
  - Blood pressure decreased [Not Recovered/Not Resolved]
